FAERS Safety Report 22334529 (Version 1)
Quarter: 2023Q2

REPORT INFORMATION
  Report Type: Spontaneous
  Country: US (occurrence: None)
  Receive Date: 20230517
  Receipt Date: 20230517
  Transmission Date: 20230721
  Serious: No
  Sender: FDA-Public Use
  Company Number: US-ROCHE-3107076

PATIENT
  Sex: Female

DRUGS (2)
  1. ACTEMRA [Suspect]
     Active Substance: TOCILIZUMAB
     Indication: Rheumatoid arthritis
     Dosage: AS PT RECEIVED SUBSEQUENTIALLY DOSE ON THE DATE: 12-MAY-2022 AND 26-MAY-2022 NEXT DUE 09- JUN-2022
     Route: 058
     Dates: start: 20220505
  2. ACTEMRA [Suspect]
     Active Substance: TOCILIZUMAB

REACTIONS (2)
  - Pain [Unknown]
  - Rheumatoid arthritis [Unknown]
